FAERS Safety Report 26161728 (Version 1)
Quarter: 2025Q4

REPORT INFORMATION
  Report Type: Spontaneous
  Country: EU (occurrence: EU)
  Receive Date: 20251216
  Receipt Date: 20251216
  Transmission Date: 20260117
  Serious: Yes (Other)
  Sender: CHEPLAPHARM
  Company Number: EU-CHEPLA-2025014056

PATIENT
  Age: 70 Year
  Sex: Female

DRUGS (2)
  1. HYDROXYUREA [Suspect]
     Active Substance: HYDROXYUREA
     Indication: Essential thrombocythaemia
     Dosage: FOR SEVEN YEARS
  2. HYDROXYUREA [Suspect]
     Active Substance: HYDROXYUREA
     Indication: Essential thrombocythaemia
     Dosage: BRIEFLY DISCONTINUED BEFORE SURGERY AND REINTRODUCED SHORTLY AFTERWARD

REACTIONS (7)
  - Acute interstitial pneumonitis [Recovered/Resolved]
  - Respiratory failure [Recovered/Resolved]
  - Thrombocytopenia [Unknown]
  - Tachycardia [Unknown]
  - Respiratory alkalosis [Recovered/Resolved]
  - Pleural effusion [Unknown]
  - Normocytic anaemia [Unknown]
